FAERS Safety Report 8068932-3 (Version None)
Quarter: 2012Q1

REPORT INFORMATION
  Report Type: 
  Country: None (occurrence: None)
  Receive Date: 20120118
  Receipt Date: 20120105
  Transmission Date: 20120608
  Serious: Yes (Other)
  Sender: FDA-Public Use
  Company Number: 1000027107

PATIENT
  Age: 4 Decade
  Sex: Female

DRUGS (1)
  1. LEXAPRO [Suspect]
     Dosage: (10 MG),ORAL
     Route: 048

REACTIONS (1)
  - HEPATIC FUNCTION ABNORMAL [None]
